FAERS Safety Report 6953063-3 (Version None)
Quarter: 2010Q3

REPORT INFORMATION
  Report Type: 
  Country: None (occurrence: None)
  Receive Date: 20100829
  Receipt Date: 20100524
  Transmission Date: 20110219
  Serious: No
  Sender: FDA-Public Use
  Company Number: US-ABBOTT-10P-163-0647833-00

PATIENT
  Sex: Male
  Weight: 88.53 kg

DRUGS (6)
  1. NIASPAN [Suspect]
     Indication: BLOOD TRIGLYCERIDES INCREASED
     Dates: start: 20090101, end: 20090101
  2. NIASPAN [Suspect]
     Dates: start: 20100201
  3. OMEPRAZOLE [Concomitant]
     Indication: GASTROOESOPHAGEAL REFLUX DISEASE
  4. CRESTOR [Concomitant]
     Indication: BLOOD CHOLESTEROL INCREASED
  5. MILOXACAM [Concomitant]
     Indication: ARTHRITIS
  6. RAPFLO [Concomitant]
     Indication: BENIGN PROSTATIC HYPERPLASIA

REACTIONS (6)
  - FEELING HOT [None]
  - FLUSHING [None]
  - PAIN [None]
  - PRURITUS [None]
  - RASH [None]
  - SWELLING FACE [None]
